FAERS Safety Report 4354469-1 (Version None)
Quarter: 2004Q2

REPORT INFORMATION
  Report Type: 
  Country: None (occurrence: None)
  Receive Date: 20040503
  Receipt Date: 20040421
  Transmission Date: 20050107
  Serious: Yes (Other)
  Sender: FDA-Public Use
  Company Number: 2004EU000835

PATIENT
  Age: 4 Year
  Sex: Male

DRUGS (2)
  1. PROGRAF [Suspect]
     Indication: LIVER TRANSPLANT
  2. VALPROIC ACID [Suspect]
     Dosage: 500.00 MG, ORAL : 800.00 MG, ORAL
     Route: 048

REACTIONS (2)
  - DRUG INTERACTION [None]
  - DRUG LEVEL DECREASED [None]
